FAERS Safety Report 7281490-6 (Version None)
Quarter: 2011Q1

REPORT INFORMATION
  Report Type: 
  Country: None (occurrence: None)
  Receive Date: 20110208
  Receipt Date: 20110127
  Transmission Date: 20110831
  Serious: Yes (Other)
  Sender: FDA-Public Use
  Company Number: PHHY2011US06922

PATIENT
  Sex: Male

DRUGS (1)
  1. GLEEVEC [Suspect]
     Indication: MYCOSIS FUNGOIDES
     Dosage: 100 MG, DAILY
     Route: 048
     Dates: start: 20070406

REACTIONS (2)
  - HAND FRACTURE [None]
  - EOSINOPHIL COUNT DECREASED [None]
